FAERS Safety Report 7985030-5 (Version None)
Quarter: 2011Q4

REPORT INFORMATION
  Report Type: 
  Country: None (occurrence: None)
  Receive Date: 20111216
  Receipt Date: 20111116
  Transmission Date: 20120403
  Serious: No
  Sender: FDA-Public Use
  Company Number: US-ALLERGAN-1115100US

PATIENT
  Age: 73 Year
  Sex: Female

DRUGS (2)
  1. LATISSE [Suspect]
     Dosage: 2 GTT, QPM
     Route: 061
     Dates: start: 20111031, end: 20111107
  2. LATISSE [Suspect]
     Indication: HYPOTRICHOSIS
     Dosage: 2 GTT, QPM
     Route: 061
     Dates: start: 20111004, end: 20111018

REACTIONS (3)
  - EYE IRRITATION [None]
  - DRY EYE [None]
  - SCLERAL HYPERAEMIA [None]
